FAERS Safety Report 5946615-0 (Version None)
Quarter: 2008Q4

REPORT INFORMATION
  Report Type: 
  Country: None (occurrence: None)
  Receive Date: 20081110
  Receipt Date: 20081105
  Transmission Date: 20090506
  Serious: Yes (Death, Life-Threatening, Hospitalization)
  Sender: FDA-Public Use
  Company Number: FR-ROCHE-595249

PATIENT
  Sex: Female

DRUGS (9)
  1. RIVOTRIL [Suspect]
     Indication: DRUG USE FOR UNKNOWN INDICATION
     Dosage: DRUG NAME REPORTED AS RIVOTRIL ROCHE.
     Route: 048
     Dates: start: 20080507, end: 20080507
  2. ZOLPIDEM [Suspect]
     Indication: DRUG USE FOR UNKNOWN INDICATION
     Route: 048
     Dates: start: 20080507, end: 20080507
  3. IMOVANE [Suspect]
     Indication: DRUG USE FOR UNKNOWN INDICATION
     Route: 048
     Dates: start: 20080507, end: 20080507
  4. MEPRONIZINE [Suspect]
     Indication: DRUG USE FOR UNKNOWN INDICATION
     Route: 048
  5. EFFEXOR [Concomitant]
     Indication: DEPRESSION
  6. ABILIFY [Concomitant]
     Indication: DEPRESSION
  7. LEPTICUR [Concomitant]
     Indication: DEPRESSION
  8. XANAX [Concomitant]
     Indication: DEPRESSION
  9. LAMALINE [Concomitant]
     Indication: DEPRESSION

REACTIONS (1)
  - CARDIAC FAILURE [None]
